FAERS Safety Report 7958935-9 (Version None)
Quarter: 2011Q4

REPORT INFORMATION
  Report Type: 
  Country: None (occurrence: None)
  Receive Date: 20111206
  Receipt Date: 20111128
  Transmission Date: 20120403
  Serious: Yes (Death)
  Sender: FDA-Public Use
  Company Number: US-ELI_LILLY_AND_COMPANY-US201110005475

PATIENT
  Age: 78 Year
  Sex: Male
  Weight: 58.97 kg

DRUGS (1)
  1. FORTEO [Suspect]
     Dosage: UNK, UNKNOWN
     Route: 065

REACTIONS (2)
  - ADENOCARCINOMA [None]
  - METASTATIC NEOPLASM [None]
